FAERS Safety Report 9117119 (Version 2)
Quarter: 2013Q1

REPORT INFORMATION
  Report Type: Spontaneous
  Country: FI (occurrence: FI)
  Receive Date: 20130225
  Receipt Date: 20130311
  Transmission Date: 20140127
  Serious: No
  Sender: FDA-Public Use
  Company Number: FI-ELI_LILLY_AND_COMPANY-FI201302004901

PATIENT
  Sex: Female

DRUGS (4)
  1. ZYPADHERA [Suspect]
     Dosage: 300 MG, 2/M
     Route: 030
     Dates: start: 20120710
  2. ZYPREXA [Suspect]
     Dosage: 30 MG, QD
  3. SEPRAM [Concomitant]
     Dosage: 20 MG, QD
  4. KETIPINOR [Concomitant]
     Dosage: 75 MG, QD

REACTIONS (2)
  - Wrong technique in drug usage process [Unknown]
  - Prescribed overdose [Unknown]
